FAERS Safety Report 17972517 (Version 1)
Quarter: 2020Q3

REPORT INFORMATION
  Report Type: Spontaneous
  Country: US (occurrence: US)
  Receive Date: 20200702
  Receipt Date: 20200702
  Transmission Date: 20201103
  Serious: No
  Sender: FDA-Public Use
  Company Number: US-TORRENT-00009093

PATIENT
  Age: 94 Year
  Sex: Male
  Weight: 77 kg

DRUGS (2)
  1. VENLAFAXINE HYDROCHLORIDE EXTENDED RELEASE CAPSULES, USP [Suspect]
     Active Substance: VENLAFAXINE HYDROCHLORIDE
     Indication: ANXIETY
     Dosage: TUESDAY AT 8 AM AND WEDNESDAY AT 8 PM, CP24
     Dates: start: 20190730, end: 201908
  2. SYNTHROID [Concomitant]
     Active Substance: LEVOTHYROXINE SODIUM
     Indication: THYROID DISORDER
     Dosage: STARTED NUMBER OF YEARS AGO AND WAS STILL ON IT

REACTIONS (5)
  - Confusional state [Recovering/Resolving]
  - Malaise [Recovering/Resolving]
  - Abdominal discomfort [Not Recovered/Not Resolved]
  - Constipation [Not Recovered/Not Resolved]
  - Flatulence [Not Recovered/Not Resolved]

NARRATIVE: CASE EVENT DATE: 2019
